FAERS Safety Report 8444207-5 (Version None)
Quarter: 2012Q2

REPORT INFORMATION
  Report Type: 
  Country: None (occurrence: None)
  Receive Date: 20120323
  Receipt Date: 20110519
  Transmission Date: 20120825
  Serious: Yes (Hospitalization)
  Sender: FDA-Public Use
  Company Number: 163-21880-11053022

PATIENT
  Age: 62 Year
  Sex: Female
  Weight: 134 kg

DRUGS (14)
  1. MULTIVITAMIN [Concomitant]
  2. VITAMIN D [Concomitant]
  3. IMMODIUM (LOPERAMIDE) [Concomitant]
  4. LENALIDOMIDE [Suspect]
     Indication: MULTIPLE MYELOMA
     Dosage: 25 MG, Q14 DAYS, PO; 25 MG, Q14 DAYS, PO
     Route: 048
     Dates: start: 20110221
  5. FLAXSEED OIL (LINSEED OIL) [Concomitant]
  6. SYNTHROID [Concomitant]
  7. LIPITOR [Concomitant]
  8. LASIX [Concomitant]
  9. TOPROL-XL [Concomitant]
  10. PROMETHAZINE [Concomitant]
  11. ARANESP [Concomitant]
  12. POTASSIUM CHLORIDE [Concomitant]
  13. LOVENOX [Concomitant]
  14. NEXIUM [Concomitant]

REACTIONS (2)
  - SYNCOPE [None]
  - HYPOTENSION [None]
